FAERS Safety Report 6739426-X (Version None)
Quarter: 2010Q2

REPORT INFORMATION
  Report Type: 
  Country: None (occurrence: None)
  Receive Date: 20100520
  Receipt Date: 20100510
  Transmission Date: 20101027
  Serious: Yes (Congenital Anomaly, Other)
  Sender: FDA-Public Use
  Company Number: 1000013413

PATIENT
  Sex: 0

DRUGS (8)
  1. ESCITALOPRAM OXALATE [Suspect]
     Dosage: 20 MG (20 MG, 1 IN 1 D), TRANSPLACENTAL
     Route: 064
     Dates: end: 20090401
  2. QUETIAPINE [Suspect]
     Dosage: 250 MG (250 MG, 1 IN 1 D), TRANSPLACENTAL
     Route: 064
     Dates: end: 20090401
  3. RANITIDINE [Concomitant]
  4. AMOXIL [Concomitant]
  5. AUGMENTIN '125' [Concomitant]
  6. CYTAMEN [Concomitant]
  7. GALFER [Concomitant]
  8. SOLPADOL [Concomitant]

REACTIONS (5)
  - FEEDING DISORDER NEONATAL [None]
  - HYPOTONIA NEONATAL [None]
  - MATERNAL DRUGS AFFECTING FOETUS [None]
  - NERVOUS SYSTEM DISORDER [None]
  - TALIPES [None]
